FAERS Safety Report 24437065 (Version 1)
Quarter: 2024Q4

REPORT INFORMATION
  Report Type: Spontaneous
  Country: ES (occurrence: ES)
  Receive Date: 20241015
  Receipt Date: 20241015
  Transmission Date: 20250115
  Serious: Yes (Hospitalization)
  Sender: MYLAN
  Company Number: ES-MYLANLABS-2024M1091644

PATIENT
  Age: 64 Year
  Sex: Female

DRUGS (4)
  1. MIRTAZAPINE [Suspect]
     Active Substance: MIRTAZAPINE
     Indication: Depression
     Dosage: UNK
     Route: 065
     Dates: start: 202002, end: 202306
  2. DESVENLAFAXINE [Suspect]
     Active Substance: DESVENLAFAXINE
     Indication: Depression
     Dosage: UNK
     Route: 065
     Dates: start: 202002, end: 202306
  3. TOPIRAMATE [Suspect]
     Active Substance: TOPIRAMATE
     Indication: Depression
     Dosage: UNK
     Route: 065
     Dates: end: 202306
  4. LITHIUM [Suspect]
     Active Substance: LITHIUM
     Indication: Depression
     Dosage: UNK
     Route: 065
     Dates: end: 202306

REACTIONS (1)
  - Therapy non-responder [Unknown]
